FAERS Safety Report 8474615-8 (Version None)
Quarter: 2012Q2

REPORT INFORMATION
  Report Type: 
  Country: None (occurrence: None)
  Receive Date: 20120621
  Receipt Date: 20120611
  Transmission Date: 20120825
  Serious: Yes (Hospitalization)
  Sender: FDA-Public Use
  Company Number: 217398

PATIENT
  Age: 74 Year
  Sex: Female
  Weight: 82 kg

DRUGS (6)
  1. CARMEN (LERCANIDIPINE)(10 MG) [Concomitant]
  2. INNOHEP [Suspect]
     Indication: PULMONARY EMBOLISM
     Dosage: 15000 IU (15000 IU,1 IN 1 D),SUBCUTANEOUS
     Route: 058
     Dates: start: 20120222
  3. INNOHEP [Suspect]
     Indication: DEEP VEIN THROMBOSIS
     Dosage: 15000 IU (15000 IU,1 IN 1 D),SUBCUTANEOUS
     Route: 058
     Dates: start: 20120222
  4. RAMIPRIL [Concomitant]
  5. BELOC ZOK (METOPROLOL SUCCINATE)(23.75 MG [Concomitant]
  6. IBUPROFEN (IBUPROFEN)(600 MG) [Concomitant]

REACTIONS (6)
  - GAIT DISTURBANCE [None]
  - HUMERUS FRACTURE [None]
  - OSTEOPOROSIS [None]
  - FALL [None]
  - HAEMATOMA [None]
  - OSTEOARTHRITIS [None]
